FAERS Safety Report 9167793 (Version 1)
Quarter: 2013Q1

REPORT INFORMATION
  Report Type: Report from Study
  Country: NZ (occurrence: NZ)
  Receive Date: 20130318
  Receipt Date: 20130318
  Transmission Date: 20140127
  Serious: Yes (Hospitalization)
  Sender: FDA-Public Use
  Company Number: PHHY2013NZ025345

PATIENT
  Sex: Male

DRUGS (2)
  1. CLOZARIL [Suspect]
     Dosage: UNK
     Dates: start: 20120130, end: 20130308
  2. CLOZARIL [Suspect]
     Dosage: UNK
     Dates: start: 20130314

REACTIONS (1)
  - Mental impairment [Unknown]
